FAERS Safety Report 13466195 (Version 1)
Quarter: 2017Q2

REPORT INFORMATION
  Report Type: Spontaneous
  Country: NO (occurrence: NO)
  Receive Date: 20170421
  Receipt Date: 20170421
  Transmission Date: 20170830
  Serious: Yes (Other)
  Sender: FDA-Public Use
  Company Number: NO-SHIRE-NO201708268

PATIENT
  Age: 7 Year
  Sex: Male

DRUGS (1)
  1. ELVANSE [Suspect]
     Active Substance: LISDEXAMFETAMINE DIMESYLATE
     Indication: ATTENTION DEFICIT/HYPERACTIVITY DISORDER
     Dosage: HALF A CAPSULE OF 30 MG, DISOLVED IN WATER, ONE DOSE
     Route: 048
     Dates: start: 20170213, end: 20170213

REACTIONS (8)
  - Crying [Recovered/Resolved]
  - Headache [Recovered/Resolved]
  - Suicidal ideation [Recovered/Resolved]
  - Burning sensation [Recovered/Resolved]
  - Insomnia [Recovered/Resolved]
  - Pain in extremity [Recovered/Resolved]
  - Wrong technique in product usage process [Recovered/Resolved]
  - Agitation [Recovered/Resolved]

NARRATIVE: CASE EVENT DATE: 20170213
